FAERS Safety Report 5303432-2 (Version None)
Quarter: 2007Q2

REPORT INFORMATION
  Report Type: 
  Country: None (occurrence: None)
  Receive Date: 20070420
  Receipt Date: 20070417
  Transmission Date: 20071010
  Serious: Yes (Other)
  Sender: FDA-Public Use
  Company Number: DE-BRISTOL-MYERS SQUIBB COMPANY-13752241

PATIENT
  Sex: Female

DRUGS (2)
  1. VOLON-A INJ 10 MG [Suspect]
     Indication: EPICONDYLITIS
     Dates: start: 20070412
  2. SOYA OIL [Concomitant]

REACTIONS (3)
  - ERYTHEMA [None]
  - OEDEMA PERIPHERAL [None]
  - PRURITUS [None]
